FAERS Safety Report 5747150-5 (Version None)
Quarter: 2008Q2

REPORT INFORMATION
  Report Type: 
  Country: None (occurrence: None)
  Receive Date: 20080520
  Receipt Date: 20080509
  Transmission Date: 20081010
  Serious: Yes (Death, Life-Threatening)
  Sender: FDA-Public Use
  Company Number: 2008050047

PATIENT
  Age: 41 Year
  Sex: Female

DRUGS (2)
  1. CARISOPRODOL [Suspect]
     Indication: ILL-DEFINED DISORDER
     Dosage: ORAL
     Route: 048
  2. ETHANOL [Suspect]
     Indication: ILL-DEFINED DISORDER
     Dosage: ORAL
     Route: 048

REACTIONS (3)
  - CARDIAC ARREST [None]
  - COMPLETED SUICIDE [None]
  - RESPIRATORY ARREST [None]
